FAERS Safety Report 4664780-2 (Version None)
Quarter: 2005Q2

REPORT INFORMATION
  Report Type: 
  Country: None (occurrence: None)
  Receive Date: 20050518
  Receipt Date: 20050323
  Transmission Date: 20051028
  Serious: Yes (Other)
  Sender: FDA-Public Use
  Company Number: PHEH2005US03642

PATIENT
  Age: 56 Year
  Sex: Female

DRUGS (20)
  1. ZOMETA [Suspect]
     Indication: MULTIPLE MYELOMA
  2. LORCET-HD [Concomitant]
     Indication: PAIN
     Dosage: UNK, PRN
     Dates: start: 19990101
  3. AREDIA [Suspect]
     Indication: MULTIPLE MYELOMA
     Dosage: 90 MG MONTHLY
     Dates: start: 19980801, end: 20020401
  4. VELCADE [Concomitant]
     Dosage: DAYS 1, 4, 8, 11 MONTHLY
     Dates: start: 20030701, end: 20040201
  5. VELCADE [Concomitant]
     Dosage: DAYS 1, 8 EVERY 21 DAYS
     Dates: start: 20041101
  6. TRISENOX [Concomitant]
     Dosage: 9 COURSES
     Dates: start: 20020901, end: 20021201
  7. VINCRISTINE + ADRIAMYCIN + DEXAMETHASONE [Concomitant]
     Dosage: 3 COURSES
     Dates: start: 19990401, end: 19990601
  8. CYTOXAN [Concomitant]
     Dates: start: 20001101, end: 20001201
  9. CYTOXAN [Concomitant]
     Dosage: UNK, UNK
     Dates: start: 20011101, end: 20011101
  10. CYTOXAN [Concomitant]
     Dates: start: 19991101, end: 20000301
  11. PLATINOL [Concomitant]
     Dosage: UNK, UNK
     Dates: start: 20011101, end: 20011101
  12. PLATINOL [Concomitant]
     Dates: start: 19991101, end: 20000301
  13. ETOPOSIDE [Concomitant]
     Dates: start: 20001101, end: 20001201
  14. ETOPOSIDE [Concomitant]
     Dosage: UNK, UNK
     Dates: start: 20011101, end: 20011101
  15. ETOPOSIDE [Concomitant]
     Dates: start: 19991101, end: 20000301
  16. DECADRON [Concomitant]
     Dates: start: 20011101, end: 20011101
  17. DECADRON [Concomitant]
     Dates: start: 19991101, end: 20000301
  18. THALIDOMIDE [Concomitant]
     Dosage: 100 MG, QHS FOR 2 WEEKS
     Dates: start: 20030301, end: 20030301
  19. THALIDOMIDE [Concomitant]
     Dosage: FOR 9 COURSES
     Dates: start: 20020901, end: 20021201
  20. THALIDOMIDE [Concomitant]
     Dates: start: 19991101, end: 20000301

REACTIONS (7)
  - ASEPTIC NECROSIS BONE [None]
  - DENTAL TREATMENT [None]
  - DRY SOCKET [None]
  - FIBROSIS [None]
  - IMPAIRED HEALING [None]
  - INFLAMMATION [None]
  - TOOTH EXTRACTION [None]
